FAERS Safety Report 4294996-9 (Version None)
Quarter: 2004Q1

REPORT INFORMATION
  Report Type: 
  Country: None (occurrence: None)
  Receive Date: 20040212
  Receipt Date: 20040212
  Transmission Date: 20041129
  Serious: Yes (Other)
  Sender: FDA-Public Use
  Company Number: None

PATIENT
  Age: 66 Year
  Sex: Female
  Weight: 61.2356 kg

DRUGS (19)
  1. TIAZAC (DILTIAZEM) 120-180 MG (FORREST) [Suspect]
     Indication: HYPERTENSION
     Dosage: 120 MG ORALLY
     Route: 048
     Dates: start: 20020515, end: 20020721
  2. TIAZAC (DILTIAZEM) 120-180 MG (FORREST) [Suspect]
     Dosage: 180 MG ORALLY
     Route: 048
     Dates: start: 20020721, end: 20030713
  3. INTAL [Concomitant]
  4. METAPREL [Concomitant]
  5. ACCOLATE [Concomitant]
  6. PRIMATENE MIST [Concomitant]
  7. ALLERGY SHOTS [Concomitant]
  8. PREMARIN [Concomitant]
  9. LEVOXYL [Concomitant]
  10. CELEBREX [Concomitant]
  11. CHONDROITIN SULFATE [Concomitant]
  12. GLUCOSAMINE [Concomitant]
  13. COLCHICINE [Concomitant]
  14. TOPROL-XL [Concomitant]
  15. TYLENOL X [Concomitant]
  16. ACTIFED [Concomitant]
  17. NEOSYNEPHRIN [Concomitant]
  18. ASPIRIN [Concomitant]
  19. MULTIVITAMIN [Concomitant]

REACTIONS (3)
  - ARTHRALGIA [None]
  - RHEUMATOID ARTHRITIS [None]
  - THROMBOSIS [None]
